FAERS Safety Report 9143136 (Version 3)
Quarter: 2013Q1

REPORT INFORMATION
  Report Type: Report from Study
  Country: US (occurrence: US)
  Receive Date: 20130306
  Receipt Date: 20130329
  Transmission Date: 20140127
  Serious: Yes (Hospitalization, Other)
  Sender: FDA-Public Use
  Company Number: US-PURDUE-USA-2013-0099447

PATIENT
  Age: 52 Year
  Sex: Male

DRUGS (6)
  1. OXYCONTIN (NDA 22-272) [Suspect]
     Indication: ARTHRALGIA
     Dosage: 160 MG, BID
     Route: 048
  2. OXYCONTIN (NDA 22-272) [Suspect]
     Indication: BACK PAIN
  3. MORPHINE [Concomitant]
     Indication: BACK PAIN
     Dosage: UNK, SEE TEXT
  4. MORPHINE [Concomitant]
     Indication: ARTHRALGIA
  5. LEXAPRO [Concomitant]
     Indication: DEPRESSION
     Dosage: 20 MG, DAILY
     Route: 048
  6. XANAX [Concomitant]
     Indication: ANXIETY
     Dosage: 1 MG, PRN
     Route: 048

REACTIONS (1)
  - Medical device change [Recovered/Resolved]
